FAERS Safety Report 13566239 (Version 1)
Quarter: 2017Q2

REPORT INFORMATION
  Report Type: Spontaneous
  Country: US (occurrence: US)
  Receive Date: 20170519
  Receipt Date: 20170519
  Transmission Date: 20170830
  Serious: No
  Sender: FDA-Public Use
  Company Number: None

PATIENT
  Age: 61 Year
  Sex: Female

DRUGS (2)
  1. IBRANCE [Suspect]
     Active Substance: PALBOCICLIB
     Indication: LUNG NEOPLASM MALIGNANT
     Dosage: 125MG DAILY PO?21 DAY CYCLE
     Route: 048
  2. IBRANCE [Suspect]
     Active Substance: PALBOCICLIB
     Indication: BREAST CANCER
     Dosage: 125MG DAILY PO?21 DAY CYCLE
     Route: 048

REACTIONS (2)
  - Chronic obstructive pulmonary disease [None]
  - Dyspnoea [None]

NARRATIVE: CASE EVENT DATE: 20170510
